FAERS Safety Report 25182174 (Version 1)
Quarter: 2025Q2

REPORT INFORMATION
  Report Type: Spontaneous
  Country: US (occurrence: US)
  Receive Date: 20250410
  Receipt Date: 20250410
  Transmission Date: 20250716
  Serious: No
  Sender: KINIKSA PHARMACEUTICALS
  Company Number: US-Kiniksa Pharmaceuticals Ltd.-2024KPU000286

PATIENT
  Age: 46 Year
  Sex: Female

DRUGS (2)
  1. ARCALYST [Suspect]
     Active Substance: RILONACEPT
     Indication: Pericarditis
     Route: 058
     Dates: start: 20231004
  2. ARCALYST [Suspect]
     Active Substance: RILONACEPT
     Route: 058

REACTIONS (14)
  - Abdominal pain upper [Recovering/Resolving]
  - Nausea [Recovering/Resolving]
  - Dizziness [Recovering/Resolving]
  - Heart rate irregular [Unknown]
  - Loss of personal independence in daily activities [Unknown]
  - Pain [Unknown]
  - Fatigue [Unknown]
  - Product solubility abnormal [Unknown]
  - Product colour issue [Unknown]
  - Injection site pain [Unknown]
  - Incorrect dose administered [Unknown]
  - Nausea [Unknown]
  - Pyrexia [Unknown]
  - Decreased appetite [Unknown]

NARRATIVE: CASE EVENT DATE: 20240214
